FAERS Safety Report 9119399 (Version 1)
Quarter: 2013Q1

REPORT INFORMATION
  Report Type: Spontaneous
  Country: US (occurrence: None)
  Receive Date: 20130222
  Receipt Date: 20130222
  Transmission Date: 20140127
  Serious: No
  Sender: FDA-Public Use
  Company Number: None

PATIENT
  Sex: Male
  Weight: 70.31 kg

DRUGS (1)
  1. BUPROPION [Suspect]
     Indication: SLEEP DISORDER
     Dosage: BUPROPION 150MG BID ORAL?2-3 MONTHS
     Route: 048

REACTIONS (4)
  - Sleep disorder [None]
  - Insomnia [None]
  - Poor quality sleep [None]
  - Product substitution issue [None]
